FAERS Safety Report 7453634-4 (Version None)
Quarter: 2011Q2

REPORT INFORMATION
  Report Type: 
  Country: None (occurrence: None)
  Receive Date: 20110502
  Receipt Date: 20110103
  Transmission Date: 20111010
  Serious: No
  Sender: FDA-Public Use
  Company Number: US-ASTRAZENECA-2011SE00226

PATIENT
  Age: 83 Year
  Sex: Female

DRUGS (6)
  1. NEXIUM [Suspect]
     Indication: GASTROOESOPHAGEAL REFLUX DISEASE
     Route: 048
  2. TUMS [Concomitant]
  3. NEXIUM [Suspect]
     Indication: DYSPEPSIA
     Route: 048
  4. METAMUCIL-2 [Concomitant]
  5. CARDIZEM [Concomitant]
  6. OSCAL [Concomitant]

REACTIONS (4)
  - HYPERTENSION [None]
  - CONSTIPATION [None]
  - INAPPROPRIATE SCHEDULE OF DRUG ADMINISTRATION [None]
  - DRY MOUTH [None]
